FAERS Safety Report 7167484 (Version 9)
Quarter: 2013Q2

REPORT INFORMATION
  Report Type: Spontaneous
  Country: US (occurrence: US)
  Receive Date: 20091105
  Receipt Date: 20130418
  Transmission Date: 20140414
  Serious: Yes (Hospitalization, Other)
  Sender: FDA-Public Use
  Company Number: US-BAYER-200937495NA

PATIENT
  Age: 44 Year
  Sex: Female
  Weight: 68 kg

DRUGS (21)
  1. YASMIN [Suspect]
     Indication: GENITAL HAEMORRHAGE
     Dosage: FROM FEB 2005 TO FEB 2007. ALSO STATED FROM APR-2006 TO DEC-2007 AND FROM FEB-2005 TO DEC-2007
     Route: 048
     Dates: start: 20050201, end: 20071203
  2. YAZ [Suspect]
     Indication: GENITAL HAEMORRHAGE
     Route: 048
  3. SYNTHROID [Concomitant]
     Indication: HYPOTHYROIDISM
     Dosage: 50 ?G (DAILY DOSE), QD, UNKNOWN
     Route: 048
  4. SYNTHROID [Concomitant]
     Indication: HYPOTHYROIDISM
     Route: 065
     Dates: start: 20090222
  5. ZOVIRAX [Concomitant]
     Route: 065
  6. LEXAPRO [Concomitant]
     Dosage: DAILY. ON 21-NOV-2007 SHE WAS ON LEXAPRO
     Route: 065
  7. LEXAPRO [Concomitant]
     Route: 065
     Dates: start: 20090222
  8. PROMETRIUM [Concomitant]
     Route: 065
  9. SEPTRA DS [Concomitant]
     Route: 048
  10. EES [Concomitant]
     Dosage: ORAL WITH FOOD, FOUR TIMES A DAY
     Route: 048
  11. DIFLUCAN [Concomitant]
     Dosage: INSTRUCTIONS: REPEAT IN 7 DAYS IF NEEDED.
     Route: 048
  12. PHENERGAN [Concomitant]
     Route: 042
     Dates: start: 20071202
  13. CELEXA [Concomitant]
  14. PROTONIX [Concomitant]
  15. ADVAIR [Concomitant]
     Dosage: 250/50
     Route: 065
  16. ANAPROX DS [Concomitant]
     Dosage: FOR 2 DAYS, BEFORE PERIOD
     Route: 048
  17. VENTOLIN [Concomitant]
     Route: 065
  18. MACROBID [Concomitant]
     Indication: CYSTITIS
     Route: 048
     Dates: start: 20090515
  19. CELEBREX [Concomitant]
     Route: 065
     Dates: start: 20100209
  20. XANAX [Concomitant]
     Route: 065
  21. UNKNOWN DRUG [Concomitant]
     Indication: THYROID DISORDER

REACTIONS (9)
  - Pulmonary embolism [Recovering/Resolving]
  - Vena cava thrombosis [Recovering/Resolving]
  - Thrombophlebitis superficial [Recovering/Resolving]
  - Chest pain [Recovering/Resolving]
  - Dyspnoea [Recovering/Resolving]
  - Nausea [Recovering/Resolving]
  - Pain in extremity [Recovering/Resolving]
  - Oedema peripheral [Recovering/Resolving]
  - Breast mass [Unknown]
